FAERS Safety Report 10247280 (Version 1)
Quarter: 2014Q2

REPORT INFORMATION
  Report Type: Spontaneous
  Country: CN (occurrence: CN)
  Receive Date: 20140619
  Receipt Date: 20140619
  Transmission Date: 20141212
  Serious: Yes (Other)
  Sender: FDA-Public Use
  Company Number: CN-GLAXOSMITHKLINE-B1004882A

PATIENT
  Age: 76 Year
  Sex: Male
  Weight: 66 kg

DRUGS (1)
  1. VENTOLIN [Suspect]
     Indication: CHRONIC OBSTRUCTIVE PULMONARY DISEASE
     Dosage: 5MG TWICE PER DAY
     Route: 055
     Dates: start: 20130917, end: 20130926

REACTIONS (2)
  - Limb discomfort [Recovered/Resolved]
  - Tremor [Recovered/Resolved]
